FAERS Safety Report 8957701 (Version 2)
Quarter: 2014Q2

REPORT INFORMATION
  Report Type: Report from Study
  Country: FR (occurrence: FR)
  Receive Date: 20121210
  Receipt Date: 20131018
  Transmission Date: 20141212
  Serious: Yes (Life-Threatening)
  Sender: FDA-Public Use
  Company Number: FR-PFIZER INC-2012306535

PATIENT
  Age: 50 Year
  Sex: Male

DRUGS (8)
  1. MYLOTARG [Suspect]
     Indication: ACUTE MYELOID LEUKAEMIA
     Dosage: UNK
     Route: 042
  2. MYLOTARG [Suspect]
     Dosage: 6 MG/KG, ONCE A DAY, AS SINGLE DOSE
     Route: 042
     Dates: start: 20081128, end: 20081128
  3. ARACYTINE [Suspect]
     Indication: ACUTE MYELOID LEUKAEMIA
     Route: 042
  4. ARACYTINE [Suspect]
     Dosage: 1000 MG/M2,ONCE EVERY 2 DAY
     Route: 042
     Dates: start: 20081125, end: 20081130
  5. ARACYTINE [Suspect]
     Dosage: UNK
     Route: 042
     Dates: start: 200901
  6. NOVANTRONE [Suspect]
     Indication: ACUTE MYELOID LEUKAEMIA
     Dosage: UNK
     Route: 042
  7. NOVANTRONE [Suspect]
     Dosage: 12 MG/M2, ONCE A DAY
     Route: 042
     Dates: start: 20081125, end: 20081126
  8. NOVANTRONE [Suspect]
     Dosage: UNK
     Route: 042
     Dates: start: 200901

REACTIONS (1)
  - Bronchopulmonary aspergillosis [Recovered/Resolved]
